FAERS Safety Report 4948227-4 (Version None)
Quarter: 2006Q1

REPORT INFORMATION
  Report Type: 
  Country: None (occurrence: None)
  Receive Date: 20060314
  Receipt Date: 20060306
  Transmission Date: 20060701
  Serious: Yes (Death)
  Sender: FDA-Public Use
  Company Number: US-2006-002663

PATIENT
  Age: 50 Year
  Sex: Female

DRUGS (5)
  1. BETASERON [Suspect]
     Indication: SECONDARY PROGRESSIVE MULTIPLE SCLEROSIS
     Dosage: 8 MUI, EVERY 2D, SUBCUTANEOUS
     Route: 058
     Dates: start: 20010701, end: 20050916
  2. INSULIN (INSULIN) [Concomitant]
  3. BACLOFEN [Concomitant]
  4. NEURONTIN [Concomitant]
  5. PROVIGIL [Concomitant]

REACTIONS (1)
  - CARDIAC ARREST [None]
